FAERS Safety Report 9773270 (Version 1)
Quarter: 2013Q4

REPORT INFORMATION
  Report Type: Spontaneous
  Country: IT (occurrence: IT)
  Receive Date: 20131219
  Receipt Date: 20131219
  Transmission Date: 20140711
  Serious: Yes (Hospitalization)
  Sender: FDA-Public Use
  Company Number: IT-GLAXOSMITHKLINE-B0953873A

PATIENT
  Age: 72 Year
  Sex: Female

DRUGS (5)
  1. ARIXTRA [Suspect]
     Indication: PROPHYLAXIS
     Dosage: 2.5MG PER DAY
     Route: 058
     Dates: start: 20130606, end: 20130612
  2. LASIX [Concomitant]
  3. ZYLORIC [Concomitant]
     Route: 048
  4. GLAZIDIM [Concomitant]
  5. COUMADIN [Concomitant]

REACTIONS (2)
  - Urticaria [Recovering/Resolving]
  - Impetigo [Unknown]
